FAERS Safety Report 9786931 (Version 1)
Quarter: 2013Q4

REPORT INFORMATION
  Report Type: Spontaneous
  Country: GB (occurrence: GB)
  Receive Date: 20131227
  Receipt Date: 20131227
  Transmission Date: 20140711
  Serious: Yes (Hospitalization, Other)
  Sender: FDA-Public Use
  Company Number: GB-ABBVIE-13P-167-1182323-00

PATIENT
  Age: 34 Year
  Sex: Male

DRUGS (8)
  1. HUMIRA [Suspect]
     Indication: CROHN^S DISEASE
     Route: 058
     Dates: start: 20110909, end: 20131014
  2. HUMIRA [Suspect]
     Dosage: DOSE HAD BEEN INCREASED BECAUSE OF INCREASED DISEASE ACTIVITY
     Route: 058
     Dates: start: 20131021
  3. TRAMADOL [Concomitant]
     Indication: PRODUCT USED FOR UNKNOWN INDICATION
     Dosage: 50-100 MG 4 TIMES A DAY WHEN REQUIRED
     Route: 048
     Dates: start: 20130701
  4. PHOSPHATE SANDOZ [Concomitant]
     Indication: PRODUCT USED FOR UNKNOWN INDICATION
     Route: 048
     Dates: start: 20131029
  5. LANSOPRAZOLE [Concomitant]
     Indication: PRODUCT USED FOR UNKNOWN INDICATION
     Route: 048
     Dates: start: 20121119
  6. FERROUS FUMARATE [Concomitant]
     Indication: PRODUCT USED FOR UNKNOWN INDICATION
     Route: 048
     Dates: start: 20131029
  7. PREDNISOLONE [Concomitant]
     Indication: PRODUCT USED FOR UNKNOWN INDICATION
     Dosage: REDUCING DOSE REGIMEN FROM 40 MG OD BY 5 MG PER WEEK
     Route: 048
  8. PREDNISOLONE [Concomitant]
     Route: 048
     Dates: start: 20131030

REACTIONS (10)
  - Convulsion [Recovered/Resolved]
  - Eye movement disorder [Recovered/Resolved]
  - Tremor [Recovered/Resolved]
  - Posturing [Recovered/Resolved]
  - Tongue biting [Recovered/Resolved]
  - Crohn^s disease [Unknown]
  - Abdominal pain [Unknown]
  - Diarrhoea [Unknown]
  - Vomiting [Unknown]
  - Weight decreased [Unknown]
